FAERS Safety Report 9553313 (Version 1)
Quarter: 2013Q3

REPORT INFORMATION
  Report Type: Spontaneous
  Country: JP (occurrence: JP)
  Receive Date: 20130925
  Receipt Date: 20130925
  Transmission Date: 20140515
  Serious: Yes (Hospitalization)
  Sender: FDA-Public Use
  Company Number: JP-UCBSA-098400

PATIENT
  Sex: Female

DRUGS (1)
  1. E KEPPRA [Suspect]
     Dosage: UNKNOWN

REACTIONS (9)
  - Diarrhoea [Unknown]
  - Pollakiuria [Unknown]
  - Haematuria [Unknown]
  - Haematochezia [Unknown]
  - Decreased appetite [Unknown]
  - Aggression [Unknown]
  - Soliloquy [Unknown]
  - Dysarthria [Unknown]
  - Abnormal behaviour [Unknown]
